FAERS Safety Report 5049407-2 (Version None)
Quarter: 2006Q3

REPORT INFORMATION
  Report Type: 
  Country: None (occurrence: None)
  Receive Date: 20060711
  Receipt Date: 20060711
  Transmission Date: 20061208
  Serious: Yes (Hospitalization)
  Sender: FDA-Public Use
  Company Number: None

PATIENT
  Age: 73 Year
  Sex: Male
  Weight: 80.2867 kg

DRUGS (12)
  1. GADOLINIUM [Suspect]
     Indication: ENCEPHALITIS
     Dosage: X1   IV
     Route: 042
  2. ACYCLOVIR [Suspect]
     Indication: ENCEPHALITIS
     Dosage: 1000MG   Q12H    IV
     Route: 042
     Dates: start: 20060503, end: 20060509
  3. ASPIRIN [Concomitant]
  4. DOXYCCCLINE [Concomitant]
  5. HALOPERIDOL [Concomitant]
  6. ISOSORBIDE [Concomitant]
  7. LORAZEPAM [Concomitant]
  8. NITROGLYCERIN [Concomitant]
  9. PROMETHAZINE [Concomitant]
  10. RANITIDINE [Concomitant]
  11. SIMVASTATIN [Concomitant]
  12. ZIPRASIDONE HCL [Concomitant]

REACTIONS (4)
  - GLOMERULONEPHRITIS [None]
  - INJURY [None]
  - RENAL FAILURE ACUTE [None]
  - RENAL TUBULAR NECROSIS [None]
